FAERS Safety Report 8581739-3 (Version None)
Quarter: 2012Q3

REPORT INFORMATION
  Report Type: 
  Country: None (occurrence: None)
  Receive Date: 20120809
  Receipt Date: 20120731
  Transmission Date: 20120928
  Serious: Yes (Death, Hospitalization, Other)
  Sender: FDA-Public Use
  Company Number: AT-CELGENEUS-009-20785-11080359

PATIENT

DRUGS (10)
  1. TOPOSIDE [Concomitant]
     Dosage: .5 MILLIGRAM
     Route: 037
  2. BEVACIZUMAB [Concomitant]
     Dosage: 10 MG/KG
     Route: 041
  3. CYCLOPHOSPHAMIDE [Concomitant]
     Dosage: 0.5-2.5 MG/KG
     Route: 065
  4. CELECOXIB [Concomitant]
     Dosage: 50-400 MG
     Route: 048
  5. CYTARABINE [Concomitant]
     Dosage: 25 MG TO 50 MG
     Route: 037
  6. ETOPOSIDE [Concomitant]
     Dosage: 10-50 MG/M2
     Route: 048
  7. THALIDOMIDE [Suspect]
     Dosage: 3 MILLIGRAM/KILOGRAM
     Route: 048
  8. DEXAMETHASONE [Concomitant]
     Indication: PROPHYLAXIS
     Route: 048
  9. FENOFIBRATE [Concomitant]
     Dosage: OR 90 MG/M2
     Route: 048
  10. THALIDOMIDE [Suspect]
     Dosage: 1.5-8 MG/KG (AFTER STARTING DOSE OF 3MG/KG)
     Route: 048

REACTIONS (12)
  - PNEUMONIA [None]
  - NEUROPATHY PERIPHERAL [None]
  - HYPOTHYROIDISM [None]
  - DEATH [None]
  - BRADYCARDIA [None]
  - VENOUS THROMBOSIS [None]
  - INTRACRANIAL PRESSURE INCREASED [None]
  - HYPERTONIA [None]
  - PROTEINURIA [None]
  - LYMPHOPENIA [None]
  - BRAIN NEOPLASM [None]
  - IMMUNOGLOBULINS DECREASED [None]
